FAERS Safety Report 4298471-7 (Version None)
Quarter: 2004Q1

REPORT INFORMATION
  Report Type: 
  Country: None (occurrence: None)
  Receive Date: 20040218
  Receipt Date: 20030926
  Transmission Date: 20041129
  Serious: No
  Sender: FDA-Public Use
  Company Number: US-BRISTOL-MYERS SQUIBB COMPANY-12395471

PATIENT
  Age: 50 Year
  Sex: Male

DRUGS (1)
  1. STADOL [Suspect]
     Indication: MIGRAINE
     Route: 045

REACTIONS (1)
  - DRUG EFFECT DECREASED [None]
